FAERS Safety Report 9691773 (Version 1)
Quarter: 2013Q4

REPORT INFORMATION
  Report Type: Spontaneous
  Country: US (occurrence: US)
  Receive Date: 20131115
  Receipt Date: 20131115
  Transmission Date: 20140711
  Serious: Yes (Other)
  Sender: FDA-Public Use
  Company Number: US-009507513-1311USA005483

PATIENT
  Age: 11 Year
  Sex: Male

DRUGS (2)
  1. SINGULAIR [Suspect]
     Indication: WHEEZING
     Route: 048
  2. SINGULAIR [Suspect]
     Indication: ASTHMA

REACTIONS (2)
  - Wheezing [Unknown]
  - Product substitution issue [Unknown]
